FAERS Safety Report 13864352 (Version 5)
Quarter: 2017Q3

REPORT INFORMATION
  Report Type: Spontaneous
  Country: US (occurrence: US)
  Receive Date: 20170814
  Receipt Date: 20170927
  Transmission Date: 20171127
  Serious: Yes (Hospitalization, Other)
  Sender: FDA-Public Use
  Company Number: US-UNITED THERAPEUTICS-UNT-2017-009702

PATIENT
  Age: 67 Year
  Sex: Female
  Weight: 115.65 kg

DRUGS (4)
  1. SILDENAFIL CITRATE. [Concomitant]
     Active Substance: SILDENAFIL CITRATE
     Indication: PRODUCT USED FOR UNKNOWN INDICATION
  2. TYVASO [Suspect]
     Active Substance: TREPROSTINIL
     Dosage: UNK
  3. TYVASO [Suspect]
     Active Substance: TREPROSTINIL
     Dosage: 54 MICROGRAMS,QID
  4. TYVASO [Suspect]
     Active Substance: TREPROSTINIL
     Indication: PULMONARY HYPERTENSION
     Dosage: 18-54 MICROGRAMS,QID
     Dates: start: 20170620

REACTIONS (13)
  - Cough [Unknown]
  - Arthralgia [Unknown]
  - Muscular weakness [Unknown]
  - Tremor [Unknown]
  - Intestinal perforation [Unknown]
  - Thirst [Unknown]
  - Pulmonary oedema [Unknown]
  - Intestinal obstruction [Unknown]
  - Diverticulitis [Unknown]
  - Pneumonia [Unknown]
  - Blood pressure decreased [Unknown]
  - Dyspnoea exertional [Not Recovered/Not Resolved]
  - Respiratory distress [Unknown]

NARRATIVE: CASE EVENT DATE: 2017
